FAERS Safety Report 8898941 (Version 1)
Quarter: 2012Q4

REPORT INFORMATION
  Report Type: 
  Country: US (occurrence: US)
  Receive Date: 20121108
  Receipt Date: 20121108
  Transmission Date: 20130627
  Serious: No
  Sender: FDA-Public Use
  Company Number: US-AMGEN-USASP2012034274

PATIENT
  Age: 66 Year
  Sex: Female

DRUGS (3)
  1. ENBREL [Suspect]
     Indication: RHEUMATOID ARTHRITIS
     Dosage: 50 mg, qwk
     Dates: start: 201109
  2. PLAQUENIL                          /00072603/ [Concomitant]
     Dosage: 1 mg, UNK
  3. CALCIUM/VITAMIN D                  /00188401/ [Concomitant]
     Dosage: 2 UNK, UNK

REACTIONS (1)
  - Seasonal allergy [Unknown]
